FAERS Safety Report 12712485 (Version 1)
Quarter: 2016Q3

REPORT INFORMATION
  Report Type: Spontaneous
  Country: HR (occurrence: HR)
  Receive Date: 20160902
  Receipt Date: 20160902
  Transmission Date: 20161109
  Serious: Yes (Other)
  Sender: FDA-Public Use
  Company Number: HR-TEVA-687632ACC

PATIENT
  Age: 70 Year
  Sex: Male

DRUGS (1)
  1. KLAVOCIN BID TABLETE 1 G [Suspect]
     Active Substance: AMOXICILLIN\CLAVULANIC ACID
     Indication: TONSILLITIS
     Dosage: 2 DOSAGE FORMS DAILY;
     Route: 048
     Dates: start: 20160502, end: 20160503

REACTIONS (2)
  - Headache [Recovered/Resolved]
  - Melaena [Recovered/Resolved]

NARRATIVE: CASE EVENT DATE: 20160502
